FAERS Safety Report 7318693-8 (Version None)
Quarter: 2011Q1

REPORT INFORMATION
  Report Type: 
  Country: None (occurrence: None)
  Receive Date: 20110228
  Receipt Date: 20110217
  Transmission Date: 20110831
  Serious: Yes (Death, Hospitalization)
  Sender: FDA-Public Use
  Company Number: JP-JNJFOC-20101204442

PATIENT
  Sex: Female
  Weight: 55 kg

DRUGS (43)
  1. DOXORUBICIN HCL [Suspect]
     Dosage: CYCLE 2
     Route: 042
  2. HIRUDOID CREAM [Concomitant]
     Indication: PALMAR-PLANTAR ERYTHRODYSAESTHESIA SYNDROME
     Route: 061
  3. BARAMYCIN [Concomitant]
     Indication: DEVICE RELATED INFECTION
     Route: 061
  4. ATARAX [Concomitant]
     Indication: PROPHYLAXIS
     Route: 042
  5. DOXORUBICIN HCL [Suspect]
     Indication: OVARIAN CANCER RECURRENT
     Dosage: CYCLE 5
     Route: 042
  6. DOXORUBICIN HCL [Suspect]
     Dosage: CYCLE 4
     Route: 042
  7. ENALAPRIL [Concomitant]
     Indication: HYPERTENSION
     Route: 048
  8. DEXART [Concomitant]
     Route: 042
  9. PACETCOOL [Concomitant]
     Indication: PROPHYLAXIS
     Route: 042
  10. LIDOCAINE HYDROCHLORIDE [Concomitant]
     Indication: PROPHYLAXIS
     Route: 065
  11. LOPEMIN [Concomitant]
     Indication: DIARRHOEA
     Route: 048
  12. TAKEPRON [Concomitant]
     Indication: GASTRITIS
     Route: 048
  13. NERIPROCT [Concomitant]
     Indication: PRODUCT USED FOR UNKNOWN INDICATION
     Route: 061
  14. DEXART [Concomitant]
     Indication: PROPHYLAXIS
     Route: 042
  15. DEXART [Concomitant]
     Route: 042
  16. DEXART [Concomitant]
     Route: 042
  17. AZULENE [Concomitant]
     Indication: LACRIMATION INCREASED
     Route: 031
  18. CRAVIT [Concomitant]
     Indication: DEVICE RELATED INFECTION
     Route: 048
  19. DOXORUBICIN HCL [Suspect]
     Dosage: CYCLE 3
     Route: 042
  20. SENNOSIDE [Concomitant]
     Indication: CONSTIPATION
     Route: 048
  21. COLAC [Concomitant]
     Indication: CONSTIPATION
     Route: 048
  22. LOXONIN [Concomitant]
     Indication: PRODUCT USED FOR UNKNOWN INDICATION
     Route: 048
  23. MUCOSTA [Concomitant]
     Indication: PROPHYLAXIS
     Route: 048
  24. GRANISETRON HYDROCHLORIDE [Concomitant]
     Route: 041
  25. DEXART [Concomitant]
     Route: 042
  26. GRAN [Concomitant]
     Indication: NEUTROPHIL COUNT DECREASED
     Route: 058
  27. INFLUENZA HA VACCINE [Concomitant]
     Indication: PROPHYLAXIS
     Route: 065
  28. GRANISETRON HYDROCHLORIDE [Concomitant]
     Route: 041
  29. GRAN [Concomitant]
     Route: 058
  30. DOXORUBICIN HCL [Suspect]
     Dosage: CYCLE 1
     Route: 042
  31. PYDOXAL [Concomitant]
     Indication: PROPHYLAXIS
     Route: 048
  32. GRANISETRON HYDROCHLORIDE [Concomitant]
     Route: 041
  33. GRANISETRON HYDROCHLORIDE [Concomitant]
     Route: 041
  34. GRANISETRON HYDROCHLORIDE [Concomitant]
     Route: 041
  35. UNKNOWN MEDICATION [Concomitant]
     Indication: PRODUCT USED FOR UNKNOWN INDICATION
     Route: 065
  36. RENIVACE [Concomitant]
     Indication: HYPERTENSION
     Route: 048
  37. GRANISETRON HYDROCHLORIDE [Concomitant]
     Indication: PROPHYLAXIS
     Route: 041
  38. U-PASTA [Concomitant]
     Indication: PRODUCT USED FOR UNKNOWN INDICATION
     Route: 061
  39. MAGMITT [Concomitant]
     Indication: CONSTIPATION
     Route: 048
  40. DOXORUBICIN HCL [Suspect]
     Dosage: CYCLE 6
     Route: 042
  41. ALOSENN [Concomitant]
     Indication: CONSTIPATION
     Route: 048
  42. LECICARBON [Concomitant]
     Indication: CONSTIPATION
     Route: 054
  43. DEXART [Concomitant]
     Route: 042

REACTIONS (2)
  - OVARIAN CANCER [None]
  - DEVICE RELATED INFECTION [None]
